FAERS Safety Report 25666060 (Version 2)
Quarter: 2025Q3

REPORT INFORMATION
  Report Type: Report from Study
  Country: US (occurrence: US)
  Receive Date: 20250811
  Receipt Date: 20250813
  Transmission Date: 20251021
  Serious: No
  Sender: BRISTOL-MYERS SQUIBB COMPANY
  Company Number: US-BRISTOL-MYERS SQUIBB COMPANY-2025-111179

PATIENT
  Age: 68 Year
  Sex: Female
  Weight: 74.84 kg

DRUGS (2)
  1. ORENCIA [Suspect]
     Active Substance: ABATACEPT
     Indication: Rheumatoid arthritis
     Route: 042
     Dates: start: 20240315
  2. UROLITHIN A [Concomitant]
     Active Substance: UROLITHIN A
     Indication: Product used for unknown indication

REACTIONS (6)
  - Protein total decreased [Recovering/Resolving]
  - Blood urea increased [Recovering/Resolving]
  - Arthropod bite [Unknown]
  - Globulins decreased [Recovering/Resolving]
  - Infection [Unknown]
  - Blood test abnormal [Unknown]

NARRATIVE: CASE EVENT DATE: 20250101
